FAERS Safety Report 16134754 (Version 7)
Quarter: 2019Q3

REPORT INFORMATION
  Report Type: Report from Study
  Country: BE (occurrence: BE)
  Receive Date: 20190329
  Receipt Date: 20190710
  Transmission Date: 20191004
  Serious: Yes (Hospitalization, Other)
  Sender: FDA-Public Use
  Company Number: BE-INCYTE CORPORATION-2019IN002383

PATIENT

DRUGS (4)
  1. JAKAVI [Suspect]
     Active Substance: RUXOLITINIB
     Indication: POLYCYTHAEMIA VERA
     Dosage: 20 MG, BID
     Route: 048
     Dates: start: 20181121
  2. HYDREA [Concomitant]
     Active Substance: HYDROXYUREA
     Indication: POLYCYTHAEMIA VERA
     Dosage: 500 DF, UNK
     Route: 065
     Dates: start: 200905, end: 20181121
  3. JAKAVI [Suspect]
     Active Substance: RUXOLITINIB
     Dosage: 10 MG, BID
     Route: 048
     Dates: start: 20181127
  4. COSAAR PLUS [Concomitant]
     Active Substance: HYDROCHLOROTHIAZIDE\LOSARTAN
     Indication: HYPERTENSION
     Dosage: UNK
     Route: 065
     Dates: start: 20090520

REACTIONS (9)
  - Metastases to bone [Recovered/Resolved]
  - Epistaxis [Recovered/Resolved]
  - Metastases to bone [Not Recovered/Not Resolved]
  - Back pain [Recovered/Resolved]
  - Metastases to bone [Recovered/Resolved]
  - Vertebral foraminal stenosis [Unknown]
  - Back pain [Recovered/Resolved]
  - Second primary malignancy [Unknown]
  - Plasmacytoma [Unknown]

NARRATIVE: CASE EVENT DATE: 201812
